FAERS Safety Report 7920643-8 (Version None)
Quarter: 2011Q4

REPORT INFORMATION
  Report Type: 
  Country: None (occurrence: None)
  Receive Date: 20111117
  Receipt Date: 20111111
  Transmission Date: 20120403
  Serious: Yes (Life-Threatening, Hospitalization)
  Sender: FDA-Public Use
  Company Number: US-ALEXION PHARMACEUTICALS INC.-A201101718

PATIENT
  Sex: Female

DRUGS (9)
  1. FLUCONAZOLE [Concomitant]
     Dosage: UNK
  2. NORCO [Concomitant]
     Dosage: UNK
  3. PENTAMIDINE [Concomitant]
     Dosage: UNK
  4. SOLIRIS [Suspect]
     Indication: PAROXYSMAL NOCTURNAL HAEMOGLOBINURIA
     Dosage: 900 MG, UNK
     Route: 042
  5. BENADRYL [Concomitant]
     Dosage: UNK
  6. CYCLOSPORINE [Concomitant]
     Dosage: UNK
  7. AMIODARONE HCL [Concomitant]
     Dosage: UNK
  8. ACYCLOVIR [Concomitant]
     Dosage: UNK
  9. NEXIUM [Concomitant]
     Dosage: UNK

REACTIONS (5)
  - NEUTROPENIA [None]
  - STREPTOCOCCAL BACTERAEMIA [None]
  - SEPTIC SHOCK [None]
  - HYPOXIA [None]
  - RESPIRATORY FAILURE [None]
